FAERS Safety Report 7761780-0 (Version None)
Quarter: 2011Q3

REPORT INFORMATION
  Report Type: 
  Country: None (occurrence: None)
  Receive Date: 20110920
  Receipt Date: 20110915
  Transmission Date: 20111222
  Serious: Yes (Death, Hospitalization)
  Sender: FDA-Public Use
  Company Number: PHHY2011JP81333

PATIENT
  Age: 87 Year
  Sex: Male

DRUGS (2)
  1. EXELON [Suspect]
     Dosage: 4.6 MG, DAILY
     Route: 062
  2. ENSURE [Concomitant]
     Dosage: UNK UKN, UNK

REACTIONS (2)
  - CONCOMITANT DISEASE PROGRESSION [None]
  - NEOPLASM MALIGNANT [None]
